FAERS Safety Report 15518063 (Version 1)
Quarter: 2018Q4

REPORT INFORMATION
  Report Type: Spontaneous
  Country: US (occurrence: US)
  Receive Date: 20181018
  Receipt Date: 20181018
  Transmission Date: 20190205
  Serious: Yes (Hospitalization)
  Sender: FDA-Public Use
  Company Number: None

PATIENT
  Age: 22 Year
  Sex: Female
  Weight: 51.75 kg

DRUGS (1)
  1. CIPROFLOXACIN. [Suspect]
     Active Substance: CIPROFLOXACIN
     Indication: YERSINIA INFECTION
     Route: 048
     Dates: start: 20170614, end: 20170616

REACTIONS (10)
  - Dyspnoea [None]
  - Pain in extremity [None]
  - Fall [None]
  - Arthralgia [None]
  - Hot flush [None]
  - Dizziness [None]
  - Insomnia [None]
  - Malaise [None]
  - Pain [None]
  - Palpitations [None]

NARRATIVE: CASE EVENT DATE: 20170615
